FAERS Safety Report 5990119-6 (Version None)
Quarter: 2008Q4

REPORT INFORMATION
  Report Type: 
  Country: None (occurrence: None)
  Receive Date: 20081211
  Receipt Date: 20081203
  Transmission Date: 20090506
  Serious: Yes (Other)
  Sender: FDA-Public Use
  Company Number: AT-ALLERGAN-0815561US

PATIENT
  Sex: Male

DRUGS (3)
  1. LUMIGAN [Suspect]
     Indication: GLAUCOMA
     Route: 047
     Dates: start: 20050101
  2. MARCUMAR [Concomitant]
     Indication: ANTICOAGULANT THERAPY
     Dates: start: 19950101
  3. MARCUMAR [Concomitant]
     Indication: THROMBOSIS

REACTIONS (1)
  - BLOOD PRESSURE INCREASED [None]
